FAERS Safety Report 8197506-9 (Version None)
Quarter: 2012Q1

REPORT INFORMATION
  Report Type: 
  Country: None (occurrence: None)
  Receive Date: 20120309
  Receipt Date: 20120307
  Transmission Date: 20120608
  Serious: Yes (Other)
  Sender: FDA-Public Use
  Company Number: US-PFIZER INC-2012042611

PATIENT
  Sex: Female
  Weight: 56 kg

DRUGS (5)
  1. CELEXA [Concomitant]
     Indication: EMPHYSEMA
     Dosage: UNK, 1X/DAY
  2. CHANTIX [Suspect]
     Dosage: UNK
     Route: 048
  3. CHANTIX [Suspect]
     Indication: SMOKING CESSATION THERAPY
     Dosage: 0.5 MG, 1X/DAY
     Route: 048
  4. SPIRIVA [Concomitant]
     Dosage: UNK, 1X/DAY
  5. VENTOLIN [Concomitant]
     Indication: ASBESTOSIS
     Dosage: UNK, AS NEEDED

REACTIONS (9)
  - SUICIDAL IDEATION [None]
  - FEELING ABNORMAL [None]
  - NIGHTMARE [None]
  - ABNORMAL DREAMS [None]
  - INSOMNIA [None]
  - DEPRESSION [None]
  - ABDOMINAL PAIN UPPER [None]
  - HEARING IMPAIRED [None]
  - FEAR [None]
